FAERS Safety Report 5872288-1 (Version None)
Quarter: 2008Q3

REPORT INFORMATION
  Report Type: 
  Country: None (occurrence: None)
  Receive Date: 20080905
  Receipt Date: 20080826
  Transmission Date: 20090109
  Serious: Yes (Death)
  Sender: FDA-Public Use
  Company Number: AU-SANOFI-SYNTHELABO-A01200610825

PATIENT
  Sex: Female

DRUGS (6)
  1. STILNOX [Suspect]
     Indication: DRUG USE FOR UNKNOWN INDICATION
     Dosage: 10 MG
     Route: 048
     Dates: start: 20040812
  2. LOVAN [Suspect]
     Dosage: 20 MG
     Route: 065
  3. DIANE 35 [Concomitant]
     Dosage: UNK
     Route: 065
  4. ENDEP [Concomitant]
     Dosage: UNK
     Route: 065
  5. EFFEXOR [Concomitant]
     Dosage: 150 MG
     Route: 065
     Dates: start: 20040927, end: 20041014
  6. ZYPREXA [Concomitant]
     Dosage: OLANZAPINE (ZYPREXA)2.5MG SHE TOOK MAYBE A DOZEN DOSES UNK
     Route: 065

REACTIONS (5)
  - AKATHISIA [None]
  - COMPLETED SUICIDE [None]
  - HALLUCINATION [None]
  - HOMICIDAL IDEATION [None]
  - PSYCHOTIC DISORDER [None]
